FAERS Safety Report 22874354 (Version 3)
Quarter: 2023Q4

REPORT INFORMATION
  Report Type: Spontaneous
  Country: US (occurrence: US)
  Receive Date: 20230828
  Receipt Date: 20231012
  Transmission Date: 20240110
  Serious: Yes (Hospitalization, Other)
  Sender: FDA-Public Use
  Company Number: US-Calliditas-2023CAL01007

PATIENT
  Age: 78 Year
  Sex: Male
  Weight: 101.15 kg

DRUGS (1)
  1. TARPEYO [Suspect]
     Active Substance: BUDESONIDE
     Indication: IgA nephropathy
     Dosage: 16 MG (4 MG CAPSULES) ONCE DAILY
     Route: 048
     Dates: start: 20230708, end: 20230818

REACTIONS (7)
  - Hepatic cirrhosis [Unknown]
  - Peripheral swelling [Unknown]
  - Atrial fibrillation [Unknown]
  - Contusion [Unknown]
  - Emotional distress [Unknown]
  - General physical health deterioration [Unknown]
  - Blood glucose increased [Unknown]
